FAERS Safety Report 8873700 (Version 1)
Quarter: 2012Q4

REPORT INFORMATION
  Report Type: 
  Country: US (occurrence: US)
  Receive Date: 20121023
  Receipt Date: 20121023
  Transmission Date: 20130627
  Serious: No
  Sender: FDA-Public Use
  Company Number: US-ASTELLAS-2012US004117

PATIENT
  Age: 71 Year
  Sex: Male

DRUGS (1)
  1. LEXISCAN [Suspect]
     Indication: PRODUCT USED FOR UNKNOWN INDICATION
     Dosage: UNK
     Route: 065
     Dates: start: 20120419, end: 20120419

REACTIONS (3)
  - Feeling abnormal [Unknown]
  - Malaise [Unknown]
  - Nausea [Not Recovered/Not Resolved]
